FAERS Safety Report 9655527 (Version 3)
Quarter: 2013Q4

REPORT INFORMATION
  Report Type: Report from Study
  Country: CN (occurrence: CN)
  Receive Date: 20131029
  Receipt Date: 20131111
  Transmission Date: 20140711
  Serious: Yes (Hospitalization)
  Sender: FDA-Public Use
  Company Number: CN-ROCHE-1280805

PATIENT
  Age: 48 Year
  Sex: Male
  Weight: 69 kg

DRUGS (11)
  1. RITUXIMAB [Suspect]
     Indication: B-CELL LYMPHOMA
     Dosage: MOST RECENT DOSE (680 ML) TAKEN ON 08-JUL-2013 (COCENTRATION:1 MG/ML)
     Route: 042
     Dates: start: 20130503
  2. CYCLOPHOSPHAMIDE [Suspect]
     Indication: B-CELL LYMPHOMA
     Dosage: DOSE OF LAST CYCLOPHOSPHAMIDE TAKEN 1400 MG, ON 09/JUL/2013
     Route: 042
     Dates: start: 20130504
  3. DOXORUBICIN [Suspect]
     Indication: B-CELL LYMPHOMA
     Dosage: DOSE OF LAST DOXORUBICIN TAKEN 90 MG ON 09/JUL/2013
     Route: 042
     Dates: start: 20130504
  4. VINCRISTINE [Suspect]
     Indication: B-CELL LYMPHOMA
     Dosage: DOSE OF LAST VINCRISTINE TAKEN 2 MG ON 09/JUL/2013
     Route: 042
     Dates: start: 20130504
  5. PREDNISONE [Suspect]
     Indication: B-CELL LYMPHOMA
     Dosage: DOSE OF LAST PREDNISONE TAKEN 100 MG ON 09/JUL/2013
     Route: 042
     Dates: start: 20130504
  6. CELECOXIB [Concomitant]
     Route: 065
     Dates: start: 20130503
  7. OMEPRAZOLE MAGNESIUM [Concomitant]
     Dosage: ENTERIC COATED
     Route: 065
     Dates: start: 20130503
  8. CREATINE PHOSPHATE SODIUM [Concomitant]
     Route: 065
     Dates: start: 20130503
  9. GRANOCYTE [Concomitant]
     Route: 065
     Dates: start: 20130504
  10. TROPISETRON HYDROCHLORIDE [Concomitant]
     Indication: VOMITING
     Route: 065
     Dates: start: 20131005
  11. ESOMEPRAZOLE MAGNESIUM [Concomitant]
     Route: 065
     Dates: start: 20130504

REACTIONS (1)
  - Lung infection [Recovered/Resolved]
